FAERS Safety Report 12574672 (Version 1)
Quarter: 2016Q3

REPORT INFORMATION
  Report Type: Spontaneous
  Country: GB (occurrence: GB)
  Receive Date: 20160720
  Receipt Date: 20160720
  Transmission Date: 20161109
  Serious: Yes (Disabling, Other)
  Sender: FDA-Public Use
  Company Number: GB-PFIZER INC-2016343729

PATIENT
  Age: 55 Year
  Sex: Male
  Weight: 81 kg

DRUGS (13)
  1. BECLOMETASONE [Concomitant]
     Active Substance: BECLOMETHASONE DIPROPIONATE
     Dosage: 2 DF, UNK
     Dates: start: 20160704
  2. LIDOCAINE. [Concomitant]
     Active Substance: LIDOCAINE
     Dosage: 5 ML, UNK
     Dates: start: 20160419, end: 20160420
  3. ASPIRIN. [Concomitant]
     Active Substance: ASPIRIN
     Dosage: 1 DF, 1X/DAY
     Route: 048
     Dates: start: 20160401
  4. SIMVASTATIN. [Concomitant]
     Active Substance: SIMVASTATIN
     Dosage: 1 DF, 1X/DAY (AT NIGHT)
     Route: 048
     Dates: start: 20160401
  5. SALMETEROL [Concomitant]
     Active Substance: SALMETEROL
     Dosage: 1 DF, 2X/DAY
     Route: 055
     Dates: start: 20160401
  6. RANOLAZINE [Concomitant]
     Active Substance: RANOLAZINE
     Dosage: 1 DF, 2X/DAY
     Route: 048
     Dates: start: 20160401
  7. OMEPRAZOLE. [Concomitant]
     Active Substance: OMEPRAZOLE
     Dosage: 1 OR 2 CAPSULES, DAILY
     Route: 048
     Dates: start: 20160401
  8. TERBUTALINE [Concomitant]
     Active Substance: TERBUTALINE
     Dosage: 1 DF, AS NEEDED
     Route: 055
     Dates: start: 20160401
  9. ADIZEM [Concomitant]
     Active Substance: DILTIAZEM HYDROCHLORIDE
     Dosage: 1 DF, 2X/DAY
     Route: 048
     Dates: start: 20160401
  10. TIOTROPIUM [Concomitant]
     Active Substance: TIOTROPIUM
     Dosage: 1 DF, 1X/DAY
     Route: 055
     Dates: start: 20160401
  11. ATORVASTATIN [Suspect]
     Active Substance: ATORVASTATIN
     Dosage: UNK
     Route: 048
     Dates: start: 20160613
  12. BUPRENORPHINE HYDROCHLORIDE. [Concomitant]
     Active Substance: BUPRENORPHINE HYDROCHLORIDE
     Indication: PAIN
     Dosage: 1 OR 2 DF, 3X/DAY
     Dates: start: 20160401
  13. GLYCERYL TRINITRATE [Concomitant]
     Active Substance: NITROGLYCERIN
     Dosage: 1 OR 2 PUFFS, AS NEEDED
     Route: 060
     Dates: start: 20160401

REACTIONS (2)
  - Erythema [Recovering/Resolving]
  - Peripheral swelling [Recovering/Resolving]

NARRATIVE: CASE EVENT DATE: 20160701
